FAERS Safety Report 7544348-0 (Version None)
Quarter: 2011Q2

REPORT INFORMATION
  Report Type: 
  Country: None (occurrence: None)
  Receive Date: 20110613
  Receipt Date: 20071108
  Transmission Date: 20111010
  Serious: Yes (Hospitalization, Other)
  Sender: FDA-Public Use
  Company Number: PHFR2007GB02987

PATIENT
  Sex: Female

DRUGS (3)
  1. CLOZAPINE [Suspect]
     Indication: SCHIZOPHRENIA
     Dosage: 100 MG/PM
     Route: 048
     Dates: start: 19971020
  2. AMISULPRIDE [Concomitant]
     Dosage: 200 MG, BID
     Route: 048
     Dates: start: 20070801
  3. VENLAFAXINE [Concomitant]
     Dosage: 225 MG, UNK
     Route: 048

REACTIONS (7)
  - RENAL IMPAIRMENT [None]
  - GAMMA-GLUTAMYLTRANSFERASE INCREASED [None]
  - LIVER FUNCTION TEST ABNORMAL [None]
  - MALAISE [None]
  - ALANINE AMINOTRANSFERASE INCREASED [None]
  - BLOOD ALKALINE PHOSPHATASE INCREASED [None]
  - BLOOD BILIRUBIN INCREASED [None]
